FAERS Safety Report 13033712 (Version 4)
Quarter: 2018Q1

REPORT INFORMATION
  Report Type: Spontaneous
  Country: CA (occurrence: CA)
  Receive Date: 20161216
  Receipt Date: 20180130
  Transmission Date: 20180508
  Serious: Yes (Hospitalization, Other)
  Sender: FDA-Public Use
  Company Number: CA-009507513-1506CAN009337

PATIENT
  Age: 56 Year
  Sex: Female

DRUGS (5)
  1. SINGULAIR [Suspect]
     Active Substance: MONTELUKAST SODIUM
     Indication: ASTHMA
     Dosage: 10 MG, QD (1 TABLET DAILY)
     Route: 048
     Dates: start: 201405
  2. PREVACID [Concomitant]
     Active Substance: LANSOPRAZOLE
     Dosage: UNK, BID, FOR OVER 10 YEARS
     Route: 065
  3. FOLIC ACID. [Concomitant]
     Active Substance: FOLIC ACID
     Dosage: 0.5 TABLET, UNK, FOR ABOUT TWO YEARS
     Dates: start: 2013
  4. COVERSYL (PERINDOPRIL ARGININE) [Suspect]
     Active Substance: PERINDOPRIL
     Indication: HYPERTENSION
     Dosage: STARTED ^OVER 5 YEARS^ AGO, UNK, QD
     Route: 065
     Dates: end: 20150614
  5. RANITIDINE. [Concomitant]
     Active Substance: RANITIDINE
     Indication: DYSPEPSIA
     Dosage: UNK, BID
     Route: 065
     Dates: start: 2013

REACTIONS (10)
  - Lung infection [Unknown]
  - Cardiac failure congestive [Unknown]
  - Peripheral swelling [Not Recovered/Not Resolved]
  - Osteomyelitis [Recovering/Resolving]
  - Limb injury [Recovering/Resolving]
  - Drug hypersensitivity [Recovering/Resolving]
  - Foot fracture [Recovering/Resolving]
  - Fall [Recovering/Resolving]
  - Lower respiratory tract infection [Unknown]
  - Localised infection [Recovering/Resolving]

NARRATIVE: CASE EVENT DATE: 20150612
